APPROVED DRUG PRODUCT: CEFEPIME HYDROCHLORIDE
Active Ingredient: CEFEPIME HYDROCHLORIDE
Strength: EQ 1GM BASE/VIAL
Dosage Form/Route: INJECTABLE;INJECTION
Application: A212721 | Product #001
Applicant: ASTRAL STERITECH PVT LTD
Approved: Jul 21, 2020 | RLD: No | RS: No | Type: DISCN